FAERS Safety Report 7409820-2 (Version None)
Quarter: 2011Q2

REPORT INFORMATION
  Report Type: 
  Country: None (occurrence: None)
  Receive Date: 20110412
  Receipt Date: 20110406
  Transmission Date: 20111010
  Serious: Yes (Hospitalization, Disabling, Other)
  Sender: FDA-Public Use
  Company Number: AU-PFIZER INC-2011038655

PATIENT
  Age: 60 Year
  Sex: Female

DRUGS (4)
  1. STILNOX [Concomitant]
  2. EFFEXOR XR [Suspect]
     Indication: MAJOR DEPRESSION
     Dosage: 450 MG, UNK
     Dates: end: 20050101
  3. EFFEXOR XR [Suspect]
     Dosage: 600 MG, 1X/DAY
     Dates: start: 20050101
  4. ISOPTIN [Concomitant]

REACTIONS (5)
  - DYSARTHRIA [None]
  - FALL [None]
  - DYSKINESIA [None]
  - ATAXIA [None]
  - CONVULSION [None]
